FAERS Safety Report 8757721 (Version 3)
Quarter: 2012Q4

REPORT INFORMATION
  Report Type: 
  Country: AU (occurrence: AU)
  Receive Date: 20120828
  Receipt Date: 20121005
  Transmission Date: 20130627
  Serious: Yes (Hospitalization)
  Sender: FDA-Public Use
  Company Number: AU-CELGENEUS-008-21660-12080718

PATIENT
  Age: 41 None
  Sex: Female
  Weight: 70 kg

DRUGS (2)
  1. ABRAXANE [Suspect]
     Indication: METASTATIC BREAST CANCER
     Route: 065
     Dates: start: 20120308, end: 20120710
  2. ZOMETA [Concomitant]
     Indication: BONE METASTASES
     Route: 065
     Dates: start: 20110916, end: 20120703

REACTIONS (4)
  - Pulmonary oedema [Recovered/Resolved]
  - Oedema peripheral [Recovering/Resolving]
  - Palpitations [Unknown]
  - Dyspnoea [Recovered/Resolved]
